FAERS Safety Report 17956299 (Version 1)
Quarter: 2020Q2

REPORT INFORMATION
  Report Type: Spontaneous
  Country: ES (occurrence: ES)
  Receive Date: 20200629
  Receipt Date: 20200629
  Transmission Date: 20200714
  Serious: Yes (Death, Life-Threatening, Hospitalization, Other)
  Sender: FDA-Public Use
  Company Number: ES-ACCORD-186539

PATIENT
  Age: 69 Year
  Sex: Male

DRUGS (25)
  1. TOBRAMYCIN. [Suspect]
     Active Substance: TOBRAMYCIN
     Indication: TRACHEOBRONCHITIS
     Route: 055
     Dates: start: 20180723
  2. VANCOMYCIN [Suspect]
     Active Substance: VANCOMYCIN
     Indication: CLOSTRIDIUM DIFFICILE COLITIS
     Route: 054
     Dates: start: 20180707
  3. SULFAMETHOXAZOLE/TRIMETHOPRIM [Suspect]
     Active Substance: SULFAMETHOXAZOLE\TRIMETHOPRIM
     Indication: STENOTROPHOMONAS INFECTION
     Route: 042
     Dates: start: 20180723
  4. AMIKACIN. [Suspect]
     Active Substance: AMIKACIN
     Indication: PSEUDOMONAS INFECTION
     Dates: start: 20180703
  5. TOBRAMYCIN. [Suspect]
     Active Substance: TOBRAMYCIN
     Indication: STENOTROPHOMONAS INFECTION
     Route: 055
     Dates: start: 20180723
  6. MEROPENEM. [Suspect]
     Active Substance: MEROPENEM
     Indication: POSTOPERATIVE WOUND INFECTION
     Dates: start: 20180813
  7. TIGECYCLINE. [Suspect]
     Active Substance: TIGECYCLINE
     Indication: ENTEROBACTER BACTERAEMIA
     Dates: start: 20180815
  8. AMIKACIN. [Suspect]
     Active Substance: AMIKACIN
     Indication: PSEUDOMONAS INFECTION
     Dates: start: 20180627
  9. CEFTAZIDIME/CEFTAZIDIME PENTAHYDRATE [Suspect]
     Active Substance: CEFTAZIDIME
     Indication: TRACHEOBRONCHITIS
     Dates: start: 20180723
  10. CIPROFLOXACIN. [Suspect]
     Active Substance: CIPROFLOXACIN
     Indication: PSEUDOMONAS INFECTION
     Route: 042
     Dates: start: 20180627
  11. TIGECYCLINE. [Suspect]
     Active Substance: TIGECYCLINE
     Indication: KLEBSIELLA INFECTION
     Dates: start: 20180813
  12. TEICOPLANIN [Suspect]
     Active Substance: TEICOPLANIN
     Indication: STREPTOCOCCAL BACTERAEMIA
     Dates: start: 20180712
  13. SULFAMETHOXAZOLE/TRIMETHOPRIM [Suspect]
     Active Substance: SULFAMETHOXAZOLE\TRIMETHOPRIM
     Indication: TRACHEOBRONCHITIS
     Route: 042
     Dates: start: 20180723
  14. AMIKACIN. [Suspect]
     Active Substance: AMIKACIN
     Indication: TRACHEOBRONCHITIS
     Dates: start: 20180703
  15. FOSCARNET [Suspect]
     Active Substance: FOSCARNET
     Indication: CYTOMEGALOVIRUS COLITIS
     Dates: start: 20180808
  16. MEROPENEM. [Suspect]
     Active Substance: MEROPENEM
     Indication: POSTOPERATIVE WOUND INFECTION
     Dates: start: 20180612
  17. CEFTAZIDIME. [Suspect]
     Active Substance: CEFTAZIDIME
     Indication: STENOTROPHOMONAS INFECTION
     Dates: start: 20180723
  18. TIGECYCLINE. [Suspect]
     Active Substance: TIGECYCLINE
     Indication: KLEBSIELLA INFECTION
     Dates: start: 20180815
  19. METRONIDAZOLE. [Suspect]
     Active Substance: METRONIDAZOLE
     Indication: CLOSTRIDIUM DIFFICILE COLITIS
     Route: 042
     Dates: start: 20180707
  20. GANCICLOVIR. [Suspect]
     Active Substance: GANCICLOVIR
     Indication: CYTOMEGALOVIRUS COLITIS
     Dates: start: 20180808
  21. MEROPENEM. [Suspect]
     Active Substance: MEROPENEM
     Indication: POSTOPERATIVE WOUND INFECTION
     Dates: start: 20180606
  22. TEICOPLANIN [Suspect]
     Active Substance: TEICOPLANIN
     Indication: DEVICE RELATED INFECTION
     Dates: start: 20180712
  23. COLISTIN [Suspect]
     Active Substance: COLISTIN
     Indication: TRACHEOBRONCHITIS
     Route: 042
     Dates: start: 20180703
  24. CEFEPIME [Suspect]
     Active Substance: CEFEPIME HYDROCHLORIDE
     Indication: PSEUDOMONAS INFECTION
     Dates: start: 20180627
  25. MEROPENEM. [Suspect]
     Active Substance: MEROPENEM
     Indication: ENTEROBACTER BACTERAEMIA
     Dates: start: 20180606

REACTIONS (8)
  - Flavobacterium infection [Fatal]
  - Multiple organ dysfunction syndrome [Fatal]
  - Thrombocytopenia [Unknown]
  - Septic shock [Fatal]
  - Atrial fibrillation [Fatal]
  - Hypotension [Unknown]
  - Leukopenia [Unknown]
  - Renal failure [Fatal]

NARRATIVE: CASE EVENT DATE: 20180823
